FAERS Safety Report 4505515-3 (Version None)
Quarter: 2004Q4

REPORT INFORMATION
  Report Type: 
  Country: None (occurrence: None)
  Receive Date: 20041119
  Receipt Date: 20041107
  Transmission Date: 20050328
  Serious: Yes (Other)
  Sender: FDA-Public Use
  Company Number: US-ROCHE-385864

PATIENT
  Age: 45 Year
  Sex: Female

DRUGS (2)
  1. PEGASYS [Suspect]
     Indication: DRUG USE FOR UNKNOWN INDICATION
     Dosage: ROUTE REPORTED AS INJECTION.
     Route: 050
     Dates: start: 20041015
  2. COPEGUS [Suspect]
     Indication: DRUG USE FOR UNKNOWN INDICATION
     Route: 048
     Dates: start: 20041015

REACTIONS (4)
  - DYSPNOEA EXERTIONAL [None]
  - EAR INFECTION [None]
  - TYMPANIC MEMBRANE PERFORATION [None]
  - WHITE BLOOD CELL COUNT DECREASED [None]
